FAERS Safety Report 14679627 (Version 1)
Quarter: 2018Q1

REPORT INFORMATION
  Report Type: Spontaneous
  Country: US (occurrence: US)
  Receive Date: 20180324
  Receipt Date: 20180324
  Transmission Date: 20180509
  Serious: Yes (Life-Threatening, Hospitalization)
  Sender: FDA-Public Use
  Company Number: None

PATIENT
  Age: 26 Year
  Sex: Female
  Weight: 52.16 kg

DRUGS (3)
  1. MULTIVITAMIN/MULTIMINERAL [Concomitant]
     Active Substance: MINERALS\VITAMINS
  2. PARAGARD T 380A [Suspect]
     Active Substance: COPPER
     Dates: start: 20150530, end: 20180222
  3. VYVANSE [Concomitant]
     Active Substance: LISDEXAMFETAMINE DIMESYLATE

REACTIONS (3)
  - Device failure [None]
  - Haemorrhage [None]
  - Ruptured ectopic pregnancy [None]

NARRATIVE: CASE EVENT DATE: 20180222
